FAERS Safety Report 5877532-2 (Version None)
Quarter: 2008Q3

REPORT INFORMATION
  Report Type: 
  Country: None (occurrence: None)
  Receive Date: 20080911
  Receipt Date: 20080728
  Transmission Date: 20090109
  Serious: No
  Sender: FDA-Public Use
  Company Number: US-KINGPHARMUSA00001-K200800869

PATIENT

DRUGS (1)
  1. PENICILLIN G PROCAINE [Suspect]

REACTIONS (1)
  - DRUG HYPERSENSITIVITY [None]
